FAERS Safety Report 9536256 (Version 1)
Quarter: 2013Q2

REPORT INFORMATION
  Report Type: Spontaneous
  Country: US (occurrence: None)
  Receive Date: 20130507
  Receipt Date: 20130507
  Transmission Date: 20140414
  Serious: Yes (Other)
  Sender: FDA-Public Use
  Company Number: PHEH2013US004237

PATIENT
  Age: 55 Year
  Sex: Female

DRUGS (1)
  1. AFINITOR (RAD) TABLET, 10MG [Suspect]
     Indication: BREAST CANCER
     Dosage: 10 MG, QD, ORAL
     Route: 048
     Dates: start: 20120910, end: 20130118

REACTIONS (3)
  - Malignant neoplasm progression [None]
  - Breast cancer [None]
  - Metastases to central nervous system [None]
